FAERS Safety Report 21900410 (Version 1)
Quarter: 2023Q1

REPORT INFORMATION
  Report Type: Spontaneous
  Country: CA (occurrence: CA)
  Receive Date: 20230123
  Receipt Date: 20230123
  Transmission Date: 20230417
  Serious: Yes (Death)
  Sender: FDA-Public Use
  Company Number: CA-PFIZER INC-PV202200134070

PATIENT
  Age: 76 Year
  Sex: Male
  Weight: 116.6 kg

DRUGS (2)
  1. MEKTOVI [Suspect]
     Active Substance: BINIMETINIB
     Dosage: 45 MG, 2X/DAY (Q12 H FOR 28 DAYS)
     Route: 048
     Dates: start: 20221207
  2. ENCORAFENIB [Suspect]
     Active Substance: ENCORAFENIB
     Dosage: 450 MG, DAILY (DAILY FOR 28 DAYS)
     Route: 048

REACTIONS (3)
  - Death [Fatal]
  - Body height increased [Unknown]
  - Body surface area increased [Unknown]

NARRATIVE: CASE EVENT DATE: 20221201
